FAERS Safety Report 10425858 (Version 1)
Quarter: 2014Q3

REPORT INFORMATION
  Report Type: Spontaneous
  Country: IE (occurrence: IE)
  Receive Date: 20140903
  Receipt Date: 20140903
  Transmission Date: 20150326
  Serious: Yes (Death)
  Sender: FDA-Public Use
  Company Number: IE-AMGEN-IRLSP2014066654

PATIENT
  Age: 83 Year
  Sex: Male

DRUGS (13)
  1. FRUMIL [Concomitant]
     Active Substance: AMILORIDE HYDROCHLORIDE\FUROSEMIDE
  2. TAXOL [Concomitant]
     Active Substance: PACLITAXEL
  3. ARANESP [Suspect]
     Active Substance: DARBEPOETIN ALFA
     Indication: PROSTATE CANCER
     Dosage: 500 MUG, ONCE OFF
     Route: 058
     Dates: start: 20131028
  4. VALOID                             /00014902/ [Concomitant]
     Active Substance: CYCLIZINE HYDROCHLORIDE
  5. DEXAMETHASONE. [Concomitant]
     Active Substance: DEXAMETHASONE
  6. ESOMEPRAZOLE [Concomitant]
     Active Substance: ESOMEPRAZOLE
  7. ONE ALPHA [Concomitant]
     Active Substance: ALFACALCIDOL
  8. INNOHEP [Concomitant]
     Active Substance: TINZAPARIN SODIUM
  9. TEMAZEPAM. [Concomitant]
     Active Substance: TEMAZEPAM
  10. CALTRATE                           /00944201/ [Concomitant]
  11. MOTILIUM [Concomitant]
     Active Substance: DOMPERIDONE
  12. ACETAMINOPHEN AND CODEINE PHOSPHATE [Concomitant]
     Active Substance: ACETAMINOPHEN\CODEINE PHOSPHATE
  13. BISOPROLOL [Concomitant]
     Active Substance: BISOPROLOL

REACTIONS (1)
  - Death [Fatal]

NARRATIVE: CASE EVENT DATE: 20140624
